FAERS Safety Report 14260726 (Version 2)
Quarter: 2017Q4

REPORT INFORMATION
  Report Type: Spontaneous
  Country: US (occurrence: US)
  Receive Date: 20171207
  Receipt Date: 20171219
  Transmission Date: 20180321
  Serious: Yes (Other)
  Sender: FDA-Public Use
  Company Number: US-009507513-1711USA012016

PATIENT
  Age: 37 Year
  Sex: Female
  Weight: 47.62 kg

DRUGS (2)
  1. NEXPLANON [Suspect]
     Active Substance: ETONOGESTREL
     Indication: CONTRACEPTION
     Dosage: IN HER LEFT ARM
     Route: 059
     Dates: start: 20171109
  2. NEXPLANON [Suspect]
     Active Substance: ETONOGESTREL
     Dosage: IN HER LEFT ARM
     Route: 059
     Dates: end: 20171109

REACTIONS (6)
  - Thrombosis [Recovering/Resolving]
  - Paraesthesia [Recovering/Resolving]
  - Pain [Recovering/Resolving]
  - Discomfort [Recovering/Resolving]
  - Device dislocation [Recovered/Resolved]
  - Skin induration [Recovering/Resolving]

NARRATIVE: CASE EVENT DATE: 2017
